FAERS Safety Report 14523617 (Version 8)
Quarter: 2018Q2

REPORT INFORMATION
  Report Type: Report from Study
  Country: DE (occurrence: DE)
  Receive Date: 20180212
  Receipt Date: 20180510
  Transmission Date: 20180711
  Serious: Yes (Hospitalization, Other)
  Sender: FDA-Public Use
  Company Number: DE-ROCHE-2071590

PATIENT
  Age: 63 Year
  Sex: Male
  Weight: 135 kg

DRUGS (13)
  1. CANDESARTAN. [Concomitant]
     Active Substance: CANDESARTAN
     Route: 048
  2. PRADAXA [Concomitant]
     Active Substance: DABIGATRAN ETEXILATE MESYLATE
     Route: 048
  3. VENETOCLAX. [Suspect]
     Active Substance: VENETOCLAX
     Indication: CHRONIC LYMPHOCYTIC LEUKAEMIA
     Dosage: CYCLE 1 (LAST 7 DAYS 20 MG DAILY) CYCLE 2 (RAMP UP 50 MG TO 400 MG) LAST DOSE PRIOR TO SAE ON 28/FEB
     Route: 048
     Dates: start: 20180222
  4. DABIGATRAN [Concomitant]
     Active Substance: DABIGATRAN
  5. HYDROCHLOROTHIAZIDE. [Concomitant]
     Active Substance: HYDROCHLOROTHIAZIDE
  6. BISOPROLOL [Concomitant]
     Active Substance: BISOPROLOL
     Route: 048
  7. OBINUTUZUMAB. [Suspect]
     Active Substance: OBINUTUZUMAB
     Dosage: (1000 MG FROM CYCLE 2-6 AS PER PROTOCOL) DATE OF LAST DOSE PRIOR TO SAE 31/JAN/2018 AND 22/FEB/2018
     Route: 042
  8. IBRUTINIB [Suspect]
     Active Substance: IBRUTINIB
     Indication: CHRONIC LYMPHOCYTIC LEUKAEMIA
     Dosage: FORM AND FREQUENCY AS PER PROTOCOL?DATE OF LAST DOSE PRIOR TO SAE 07/FEB/2018 AND 01/MAR/2018 AT 420
     Route: 048
     Dates: start: 20180116
  9. TOREM [Concomitant]
     Active Substance: TORSEMIDE
     Route: 048
  10. ALLOPURINOL. [Concomitant]
     Active Substance: ALLOPURINOL
     Route: 048
  11. TELMISARTAN. [Concomitant]
     Active Substance: TELMISARTAN
  12. OBINUTUZUMAB. [Suspect]
     Active Substance: OBINUTUZUMAB
     Indication: CHRONIC LYMPHOCYTIC LEUKAEMIA
     Dosage: FREQUENCY AND DOSE AS PER PROTOCOL
     Route: 042
     Dates: start: 20180116
  13. APIXABAN [Concomitant]
     Active Substance: APIXABAN
     Route: 048

REACTIONS (6)
  - Generalised tonic-clonic seizure [Not Recovered/Not Resolved]
  - Cystitis escherichia [Recovered/Resolved]
  - Cerebral aspergillosis [Not Recovered/Not Resolved]
  - Febrile neutropenia [Not Recovered/Not Resolved]
  - Febrile infection [Not Recovered/Not Resolved]
  - Dehydration [Not Recovered/Not Resolved]

NARRATIVE: CASE EVENT DATE: 20180207
